FAERS Safety Report 23948898 (Version 1)
Quarter: 2024Q2

REPORT INFORMATION
  Report Type: Other
  Country: CN (occurrence: CN)
  Receive Date: 20240607
  Receipt Date: 20240607
  Transmission Date: 20240716
  Serious: Yes (Hospitalization)
  Sender: FDA-Public Use
  Company Number: CN-PARATEK PHARMACEUTICALS, INC.-2024PTK00445

PATIENT
  Age: 79 Year
  Sex: Male

DRUGS (2)
  1. NUZYRA [Suspect]
     Active Substance: OMADACYCLINE
     Indication: Pneumonia
     Dosage: 200 MG, QD
     Route: 041
     Dates: start: 20240517, end: 20240517
  2. NUZYRA [Suspect]
     Active Substance: OMADACYCLINE
     Indication: Acinetobacter infection
     Dosage: 100 MG, QD
     Route: 041
     Dates: start: 20240518, end: 20240523

REACTIONS (2)
  - Hepatic function abnormal [Recovering/Resolving]
  - Off label use [Recovered/Resolved]

NARRATIVE: CASE EVENT DATE: 20240517
